FAERS Safety Report 5650371-3 (Version None)
Quarter: 2008Q1

REPORT INFORMATION
  Report Type: 
  Country: None (occurrence: None)
  Receive Date: 20080304
  Receipt Date: 20080304
  Transmission Date: 20080703
  Serious: Yes (Death, Life-Threatening, Other)
  Sender: FDA-Public Use
  Company Number: None

PATIENT
  Age: 22 Year
  Sex: Male
  Weight: 96.6162 kg

DRUGS (1)
  1. WELLBUTRIN [Suspect]
     Dosage: 150 MG 1 PER DAY PO
     Route: 048
     Dates: start: 20070305, end: 20070601

REACTIONS (4)
  - ADVERSE DRUG REACTION [None]
  - COMPLETED SUICIDE [None]
  - GUN SHOT WOUND [None]
  - MEDICATION ERROR [None]
